FAERS Safety Report 16896573 (Version 1)
Quarter: 2019Q4

REPORT INFORMATION
  Report Type: Report from Study
  Country: US (occurrence: US)
  Receive Date: 20191008
  Receipt Date: 20191008
  Transmission Date: 20200122
  Serious: Yes (Hospitalization)
  Sender: FDA-Public Use
  Company Number: US-GILEAD-2019-0431979

PATIENT
  Sex: Male

DRUGS (17)
  1. VITAMIN D [VITAMIN D NOS] [Concomitant]
     Active Substance: VITAMIN D NOS
  2. LEVAQUIN [Concomitant]
     Active Substance: LEVOFLOXACIN
  3. NEXIUM [Concomitant]
     Active Substance: ESOMEPRAZOLE MAGNESIUM
  4. PHENERGAN [Concomitant]
     Active Substance: PROMETHAZINE HYDROCHLORIDE
  5. AZITHROMYCIN ANHYDROUS. [Concomitant]
     Active Substance: AZITHROMYCIN ANHYDROUS
  6. ZENPEP [Concomitant]
     Active Substance: PANCRELIPASE AMYLASE\PANCRELIPASE LIPASE\PANCRELIPASE PROTEASE
  7. REMERON [Concomitant]
     Active Substance: MIRTAZAPINE
  8. HYPERSAL [Concomitant]
     Active Substance: SODIUM CHLORIDE
  9. HUMALOG [Concomitant]
     Active Substance: INSULIN LISPRO
  10. LEVEMIR [Concomitant]
     Active Substance: INSULIN DETEMIR
  11. DURAGESIC [Concomitant]
     Active Substance: FENTANYL
  12. VITAMIN A [RETINOL] [Concomitant]
     Active Substance: RETINOL
  13. VITAMINS NOS [Concomitant]
     Active Substance: VITAMINS
  14. TPN [AMINO ACIDS NOS;CARBOHYDRATES NOS;MINERALS NOS;VITAMINS NOS] [Concomitant]
  15. AZTREONAM LYSINE [Suspect]
     Active Substance: AZTREONAM LYSINE
     Indication: CYSTIC FIBROSIS
     Dosage: 75 MG, TID 28 DAYS ON AND 28 DAYS OFF
     Route: 055
  16. GABAPENTIN. [Concomitant]
     Active Substance: GABAPENTIN
  17. PULMOZYME [Concomitant]
     Active Substance: DORNASE ALFA

REACTIONS (1)
  - Gastrostomy tube removal [Unknown]
